FAERS Safety Report 9531422 (Version 1)
Quarter: 2013Q3

REPORT INFORMATION
  Report Type: Spontaneous
  Country: US (occurrence: None)
  Receive Date: 20130916
  Receipt Date: 20130916
  Transmission Date: 20140515
  Serious: No
  Sender: FDA-Public Use
  Company Number: None

PATIENT
  Age: 36 Year
  Sex: Female
  Weight: 68.04 kg

DRUGS (14)
  1. LAMOTRIGINE [Suspect]
     Indication: DEPRESSION
  2. LAMOTRIGINE [Suspect]
     Indication: ANXIETY
  3. LITHIUM [Concomitant]
  4. DEXILANT [Concomitant]
  5. LYRICA [Concomitant]
  6. METOPROLOL [Concomitant]
  7. METFORMIN [Concomitant]
  8. LEVOTHYROXINE [Concomitant]
  9. TOPIRAMATE [Concomitant]
  10. AMITIZA [Concomitant]
  11. MONTELUKAST [Concomitant]
  12. VALACYCLOVIR [Concomitant]
  13. LORATADINE [Concomitant]
  14. CALCIUM [Concomitant]

REACTIONS (7)
  - Balance disorder [None]
  - Fall [None]
  - Diplopia [None]
  - Vision blurred [None]
  - Hypersensitivity [None]
  - Oedema [None]
  - Drug interaction [None]
